FAERS Safety Report 7341895-1 (Version None)
Quarter: 2011Q1

REPORT INFORMATION
  Report Type: 
  Country: None (occurrence: None)
  Receive Date: 20110309
  Receipt Date: 20110127
  Transmission Date: 20110831
  Serious: Yes (Other)
  Sender: FDA-Public Use
  Company Number: GB-PFIZER INC-2011050045

PATIENT
  Sex: Female

DRUGS (2)
  1. SULFASALAZINE [Suspect]
     Indication: PALINDROMIC RHEUMATISM
     Dosage: 1500 MG, 2X/DAY
  2. HYDROXYCHLOROQUINE SULFATE [Concomitant]
     Indication: PALINDROMIC RHEUMATISM
     Dosage: 200 MG, 2X/DAY

REACTIONS (2)
  - RHEUMATOID ARTHRITIS [None]
  - DRUG INEFFECTIVE [None]
